FAERS Safety Report 14514045 (Version 1)
Quarter: 2018Q1

REPORT INFORMATION
  Report Type: Spontaneous
  Country: US (occurrence: US)
  Receive Date: 20180208
  Receipt Date: 20180208
  Transmission Date: 20180509
  Serious: No
  Sender: FDA-Public Use
  Company Number: None

PATIENT
  Age: 70 Year
  Sex: Female

DRUGS (15)
  1. PERIDEX [Concomitant]
     Active Substance: CHLORHEXIDINE GLUCONATE
  2. XARELTO [Concomitant]
     Active Substance: RIVAROXABAN
  3. VITAMIN C [Concomitant]
     Active Substance: ASCORBIC ACID
  4. LONSURF [Suspect]
     Active Substance: TIPIRACIL HYDROCHLORIDE\TRIFLURIDINE
     Dosage: DOSE - 1 TAB BID DAYS 1-5 + 8-12
     Route: 048
     Dates: start: 20180106
  5. FUROSEMIDE. [Concomitant]
     Active Substance: FUROSEMIDE
  6. FENTANYL. [Concomitant]
     Active Substance: FENTANYL
  7. MOTRIN [Concomitant]
     Active Substance: IBUPROFEN
  8. SENNA [Concomitant]
     Active Substance: SENNA LEAF\SENNOSIDES\SENNOSIDES A AND B
  9. COZAAR [Concomitant]
     Active Substance: LOSARTAN POTASSIUM
  10. CALCIUM CARB-CHOLECALCIFEROL [Concomitant]
  11. OMEPRAZOLE. [Concomitant]
     Active Substance: OMEPRAZOLE
  12. KLOR-CON [Concomitant]
     Active Substance: POTASSIUM CHLORIDE
  13. ANTI SEPTIC MOUTH RINSE [Concomitant]
  14. DEXAMETHASONE. [Concomitant]
     Active Substance: DEXAMETHASONE
  15. DECADRON [Concomitant]
     Active Substance: DEXAMETHASONE

REACTIONS (2)
  - Diarrhoea [None]
  - Pain [None]
